FAERS Safety Report 6637670-3 (Version None)
Quarter: 2010Q1

REPORT INFORMATION
  Report Type: 
  Country: None (occurrence: None)
  Receive Date: 20100317
  Receipt Date: 20100305
  Transmission Date: 20100710
  Serious: Yes (Hospitalization, Other)
  Sender: FDA-Public Use
  Company Number: US-TYCO HEALTHCARE/MALLINCKRODT-T200901315

PATIENT
  Sex: Female

DRUGS (15)
  1. OPTIMARK [Suspect]
     Indication: NUCLEAR MAGNETIC RESONANCE IMAGING BRAIN
     Dosage: UNK
     Dates: start: 20040214, end: 20040214
  2. OPTIMARK [Suspect]
     Indication: ANGIOGRAM
     Dosage: UNK
     Dates: start: 20040220, end: 20040220
  3. OPTIMARK [Suspect]
     Indication: NUCLEAR MAGNETIC RESONANCE IMAGING
     Dosage: UNK
     Dates: start: 20060922, end: 20060922
  4. OPTIMARK [Suspect]
     Dosage: UNK
     Dates: start: 20061112, end: 20061112
  5. ZESTRIL [Concomitant]
     Dosage: 40 MG, QD
     Route: 048
  6. HYDROCHLOROTHIAZIDE [Concomitant]
     Dosage: 12.5 MG, QD
     Route: 048
  7. TOPROL-XL [Concomitant]
     Dosage: 50 MG, BID
     Route: 048
  8. NITROGLYCERIN [Concomitant]
  9. INSULIN [Concomitant]
     Dosage: 25 UNITS QAM AND 35 UNITS QPM
  10. LIPITOR [Concomitant]
     Dosage: 20 MG, QHS
     Route: 048
  11. ASPIRIN [Concomitant]
     Dosage: 325 MG, QD
     Route: 048
  12. PEPCID [Concomitant]
     Dosage: UNK
     Route: 042
  13. PHENERGAN HCL [Concomitant]
     Dosage: UNK
     Route: 042
  14. LOPRESSOR [Concomitant]
     Dosage: 5 MG Q6 HOURS
  15. COUMADIN [Concomitant]
     Dosage: 5 MG, QD
     Route: 048

REACTIONS (31)
  - ATRIAL TACHYCARDIA [None]
  - BRONCHITIS [None]
  - CHOLELITHIASIS [None]
  - COAGULOPATHY [None]
  - CONVULSION [None]
  - DELIRIUM [None]
  - DIABETIC NEUROPATHY [None]
  - DIVERTICULUM [None]
  - ENCEPHALOPATHY [None]
  - FOOT FRACTURE [None]
  - GASTROOESOPHAGEAL REFLUX DISEASE [None]
  - GENERALISED ANXIETY DISORDER [None]
  - HAEMATEMESIS [None]
  - HEPATITIS [None]
  - HERNIA [None]
  - HYPERGLYCAEMIA [None]
  - HYPERKALAEMIA [None]
  - HYPERTENSIVE CRISIS [None]
  - IMPAIRED GASTRIC EMPTYING [None]
  - INSOMNIA [None]
  - LIBIDO DECREASED [None]
  - MAJOR DEPRESSION [None]
  - METABOLIC ACIDOSIS [None]
  - NEPHROGENIC SYSTEMIC FIBROSIS [None]
  - OFF LABEL USE [None]
  - PANCREATITIS [None]
  - PERITONEAL DIALYSIS COMPLICATION [None]
  - PNEUMONIA [None]
  - RECTAL POLYP [None]
  - SINUSITIS [None]
  - WOUND INFECTION [None]
